FAERS Safety Report 17132056 (Version 4)
Quarter: 2020Q1

REPORT INFORMATION
  Report Type: Report from Study
  Country: US (occurrence: US)
  Receive Date: 20191210
  Receipt Date: 20200117
  Transmission Date: 20200409
  Serious: Yes (Other)
  Sender: FDA-Public Use
  Company Number: US-AMGEN-USASP2019203057

PATIENT
  Age: 67 Year
  Sex: Female

DRUGS (1)
  1. PROLIA [Suspect]
     Active Substance: DENOSUMAB
     Indication: OSTEOPENIA
     Dosage: UNK
     Route: 065

REACTIONS (23)
  - Gait disturbance [Unknown]
  - Herpes virus infection [Unknown]
  - Off label use [Unknown]
  - Carditis [Unknown]
  - Constipation [Recovered/Resolved]
  - Arthritis [Unknown]
  - Wound infection [Unknown]
  - Asthenia [Recovered/Resolved]
  - Gastrointestinal bacterial overgrowth [Unknown]
  - Urine calcium increased [Unknown]
  - Arthralgia [Unknown]
  - Neck pain [Unknown]
  - Noninfective gingivitis [Recovered/Resolved]
  - Palpitations [Unknown]
  - Discomfort [Unknown]
  - Vitamin D increased [Unknown]
  - Endocarditis [Unknown]
  - Feeding disorder [Unknown]
  - Vitamin C decreased [Unknown]
  - Thrombocytopenic purpura [Unknown]
  - Adverse event [Unknown]
  - Gastrooesophageal reflux disease [Recovered/Resolved]
  - Spinal osteoarthritis [Recovered/Resolved]

NARRATIVE: CASE EVENT DATE: 2019
